FAERS Safety Report 18740746 (Version 1)
Quarter: 2021Q1

REPORT INFORMATION
  Report Type: Spontaneous
  Country: US (occurrence: US)
  Receive Date: 20210114
  Receipt Date: 20210114
  Transmission Date: 20210419
  Serious: Yes (Death)
  Sender: FDA-Public Use
  Company Number: US-PFIZER INC-2021014891

PATIENT
  Age: 42 Year
  Sex: Male

DRUGS (15)
  1. MORPHINE SULFATE. [Suspect]
     Active Substance: MORPHINE SULFATE
     Dosage: UNK
     Route: 051
  2. CODEINE [Suspect]
     Active Substance: CODEINE
     Dosage: UNK
     Route: 051
  3. METHAMPHETAMINE [METAMFETAMINE HYDROCHLORIDE] [Suspect]
     Active Substance: METHAMPHETAMINE HYDROCHLORIDE
     Dosage: UNK (INHALATION)
     Route: 055
  4. METHAMPHETAMINE [METAMFETAMINE HYDROCHLORIDE] [Suspect]
     Active Substance: METHAMPHETAMINE HYDROCHLORIDE
     Dosage: UNK
     Route: 051
  5. MARIJUANA [Suspect]
     Active Substance: CANNABIS SATIVA SUBSP. INDICA TOP
     Dosage: UNK (INHALATION)
     Route: 055
  6. MORPHINE [Suspect]
     Active Substance: MORPHINE
     Dosage: UNK (INGESTION)
     Route: 048
  7. MARIJUANA [Suspect]
     Active Substance: CANNABIS SATIVA SUBSP. INDICA TOP
     Dosage: UNK (INGESTION)
     Route: 048
  8. MARIJUANA [Suspect]
     Active Substance: CANNABIS SATIVA SUBSP. INDICA TOP
     Dosage: UNK
     Route: 051
  9. HYDROMORPHONE HYDROCHLORIDE. [Suspect]
     Active Substance: HYDROMORPHONE HYDROCHLORIDE
     Dosage: UNK
     Route: 051
  10. MORPHINE [Suspect]
     Active Substance: MORPHINE
     Dosage: UNK (INHALATION)
     Route: 055
  11. HYDROMORPHONE [Suspect]
     Active Substance: HYDROMORPHONE
     Dosage: UNK (INHALATION)
     Route: 055
  12. METHAMPHETAMINE [METAMFETAMINE HYDROCHLORIDE] [Suspect]
     Active Substance: METHAMPHETAMINE HYDROCHLORIDE
     Dosage: UNK (INGESTION)
     Route: 048
  13. HYDROMORPHONE [Suspect]
     Active Substance: HYDROMORPHONE
     Dosage: UNK (INGESTION)
     Route: 048
  14. CODEINE [Suspect]
     Active Substance: CODEINE
     Dosage: UNK (INGESTION)
     Route: 048
  15. CODEINE [Suspect]
     Active Substance: CODEINE
     Dosage: UNK (INHALATION)
     Route: 055

REACTIONS (3)
  - Cardiac arrest [Fatal]
  - Respiratory arrest [Fatal]
  - Drug abuse [Fatal]

NARRATIVE: CASE EVENT DATE: 2019
